FAERS Safety Report 9386937 (Version 1)
Quarter: 2013Q3

REPORT INFORMATION
  Report Type: Spontaneous
  Country: US (occurrence: US)
  Receive Date: 20130708
  Receipt Date: 20130708
  Transmission Date: 20140515
  Serious: No
  Sender: FDA-Public Use
  Company Number: US-009507513-1307USA002587

PATIENT
  Sex: 0

DRUGS (1)
  1. COSOPT [Suspect]
     Dosage: INSTILLS COSOPT AT NIGHT AT APPROXIMATELY 12:00AM AND THEN AGAIN 6 HOURS LATER WHEN HE WAKES UP

REACTIONS (2)
  - Inappropriate schedule of drug administration [Unknown]
  - No adverse event [Unknown]
